FAERS Safety Report 9188695 (Version 3)
Quarter: 2013Q2

REPORT INFORMATION
  Report Type: Spontaneous
  Country: US (occurrence: US)
  Receive Date: 20130325
  Receipt Date: 20130521
  Transmission Date: 20140414
  Serious: No
  Sender: FDA-Public Use
  Company Number: US-PFIZER INC-2013092016

PATIENT
  Age: 65 Year
  Sex: Male

DRUGS (1)
  1. COLESTIPOL HCL [Suspect]
     Dosage: 1 G, UNK

REACTIONS (1)
  - Medication residue present [Unknown]
